FAERS Safety Report 19899644 (Version 4)
Quarter: 2022Q1

REPORT INFORMATION
  Report Type: Other
  Country: US (occurrence: None)
  Receive Date: 20210930
  Receipt Date: 20220107
  Transmission Date: 20220423
  Serious: Yes (Hospitalization, Other)
  Sender: FDA-Public Use
  Company Number: US-ROCHE-2824419

PATIENT
  Age: 75 Year
  Sex: Female

DRUGS (15)
  1. ACTEMRA [Suspect]
     Active Substance: TOCILIZUMAB
     Indication: Autoimmune disorder
     Route: 058
  2. ACTEMRA [Suspect]
     Active Substance: TOCILIZUMAB
     Indication: Giant cell arteritis
  3. ACTEMRA [Suspect]
     Active Substance: TOCILIZUMAB
     Indication: Giant cell arteritis
     Dosage: EVERY MONDAY, SHOT IN BELLY OR THIGH
     Route: 065
  4. UNSPECIFIED INGREDIENT [Suspect]
     Active Substance: UNSPECIFIED INGREDIENT
     Indication: Product used for unknown indication
     Route: 048
     Dates: end: 202110
  5. PREDNISONE [Concomitant]
     Active Substance: PREDNISONE
  6. POTASSIUM [Concomitant]
     Active Substance: POTASSIUM
     Indication: Blood potassium decreased
     Route: 048
     Dates: start: 202110
  7. POTASSIUM [Concomitant]
     Active Substance: POTASSIUM
     Route: 048
     Dates: end: 202110
  8. ALPRAZOLAM [Concomitant]
     Active Substance: ALPRAZOLAM
     Indication: Anxiety
     Dosage: HALF A 2 MG TABLET AS NEEDED
     Route: 048
  9. AMLODIPINE [Concomitant]
     Active Substance: AMLODIPINE BESYLATE
     Route: 048
  10. FLUTICASONE [Concomitant]
     Active Substance: FLUTICASONE
     Route: 045
  11. PRAVASTATIN [Concomitant]
     Active Substance: PRAVASTATIN
     Indication: Blood cholesterol
     Route: 048
     Dates: end: 202110
  12. OMEPRAZOLE [Concomitant]
     Active Substance: OMEPRAZOLE
     Indication: Gastrooesophageal reflux disease
     Dosage: DELAYED-RELEASE CAPSULE
     Route: 048
     Dates: end: 202110
  13. CORTIZONE 10 [Concomitant]
     Active Substance: HYDROCORTISONE
     Indication: Pain
     Route: 048
  14. CORTIZONE 10 [Concomitant]
     Active Substance: HYDROCORTISONE
     Dosage: 5 MG PER TABLET, 3 TABLETS TOTAL
     Route: 048
     Dates: start: 2021, end: 2021
  15. SPIRONOLACTONE [Concomitant]
     Active Substance: SPIRONOLACTONE
     Route: 048
     Dates: start: 202110

REACTIONS (31)
  - Wrist fracture [Unknown]
  - Vision blurred [Unknown]
  - Blindness [Unknown]
  - Fall [Unknown]
  - Musculoskeletal disorder [Unknown]
  - Nerve injury [Unknown]
  - Asthenia [Unknown]
  - Cataract [Unknown]
  - Chest pain [Unknown]
  - Contusion [Unknown]
  - Scar [Unknown]
  - Hypersensitivity [Unknown]
  - Bone pain [Unknown]
  - Arthropathy [Unknown]
  - Muscle atrophy [Unknown]
  - Nerve injury [Unknown]
  - Skin atrophy [Unknown]
  - Arthritis [Unknown]
  - Blood calcium decreased [Unknown]
  - Blood potassium decreased [Unknown]
  - Unevaluable event [Unknown]
  - Myalgia [Unknown]
  - Psoriasis [Unknown]
  - Muscle atrophy [Unknown]
  - Arthralgia [Unknown]
  - Osteoporosis [Unknown]
  - Joint swelling [Unknown]
  - Pain [Unknown]
  - Optic nerve disorder [Unknown]
  - Finger deformity [Unknown]
  - Blood potassium decreased [Unknown]

NARRATIVE: CASE EVENT DATE: 20200701
